FAERS Safety Report 13573604 (Version 1)
Quarter: 2017Q2

REPORT INFORMATION
  Report Type: Other
  Country: FR (occurrence: FR)
  Receive Date: 20170523
  Receipt Date: 20170523
  Transmission Date: 20170830
  Serious: Yes (Other)
  Sender: FDA-Public Use
  Company Number: FR-EMCURE PHARMS-2017HTG00116

PATIENT
  Sex: Female

DRUGS (6)
  1. CYTARABINE KABI [Suspect]
     Active Substance: CYTARABINE
     Indication: DIFFUSE LARGE B-CELL LYMPHOMA
     Dosage: 300 MG, 2X/DAY
     Route: 042
     Dates: start: 20160107, end: 20160110
  2. ETOPOPHOS [Suspect]
     Active Substance: ETOPOSIDE PHOSPHATE
     Indication: DIFFUSE LARGE B-CELL LYMPHOMA
     Dosage: 150 MG, 2X/DAY
     Route: 042
     Dates: start: 20160107, end: 20160110
  3. ALKERAN [Suspect]
     Active Substance: MELPHALAN
     Indication: DIFFUSE LARGE B-CELL LYMPHOMA
     Dosage: 210 MG, ONCE
     Route: 042
     Dates: start: 20160111, end: 20160111
  4. BICNU [Suspect]
     Active Substance: CARMUSTINE
     Indication: DIFFUSE LARGE B-CELL LYMPHOMA
     Dosage: 470 MG, ONCE
     Route: 042
     Dates: start: 20160106, end: 20160106
  5. LEVOTHYROX [Concomitant]
     Active Substance: LEVOTHYROXINE
  6. ZARZIO [Concomitant]
     Active Substance: FILGRASTIM
     Dosage: 1 DOSAGE UNITS, 1X/DAY
     Dates: start: 20160117

REACTIONS (3)
  - Cardiac flutter [Recovered/Resolved]
  - Chest pain [Recovered/Resolved]
  - Tachyarrhythmia [Recovered/Resolved]

NARRATIVE: CASE EVENT DATE: 20160120
